FAERS Safety Report 11319462 (Version 1)
Quarter: 2015Q3

REPORT INFORMATION
  Report Type: Spontaneous
  Country: US (occurrence: None)
  Receive Date: 20150727
  Receipt Date: 20150727
  Transmission Date: 20151125
  Serious: Yes (Other)
  Sender: FDA-Public Use
  Company Number: None

PATIENT
  Age: 53 Year
  Sex: Male
  Weight: 113.4 kg

DRUGS (1)
  1. ATORVASTATIN 20 MG [Suspect]
     Active Substance: ATORVASTATIN
     Dosage: AT BEDTIME; TAKEN BY MOUTH

REACTIONS (1)
  - Tendon rupture [None]

NARRATIVE: CASE EVENT DATE: 20150426
